FAERS Safety Report 6723567-7 (Version None)
Quarter: 2010Q2

REPORT INFORMATION
  Report Type: 
  Country: None (occurrence: None)
  Receive Date: 20100513
  Receipt Date: 20100305
  Transmission Date: 20101027
  Serious: Yes (Hospitalization)
  Sender: FDA-Public Use
  Company Number: TH-ROCHE-651591

PATIENT
  Sex: Female
  Weight: 50.5 kg

DRUGS (24)
  1. TRASTUZUMAB [Suspect]
     Indication: BREAST CANCER
     Dosage: FORM: VIALS, DOSE LEVEL: 8 MG/KG FOR CYCLE 1 AND AND 6 MG/KG FOR CYCLE 2,3
     Route: 042
     Dates: start: 20090701
  2. TRASTUZUMAB [Suspect]
     Dosage: DOES LEVEL: 6 MG/KG.LAST DOSE PRIOR TO SAE: 13 AUG 2009
     Route: 042
     Dates: start: 20090701
  3. TRASTUZUMAB [Suspect]
     Dosage: DOSAGE FORM: VIALS. DOSE LEVEL: 150 MG/KG. LAST DOSE PRIOR TO SAE: 25 NOVEMBER 2009
     Route: 042
     Dates: start: 20091104
  4. BEVACIZUMAB [Suspect]
     Indication: BREAST CANCER
     Dosage: FORM: VIALS; DOSE LEVEL: 15MG/KG;LAST DOSE PRIOR TO SAE: 13 AUG 2009
     Route: 042
     Dates: start: 20090701
  5. BEVACIZUMAB [Suspect]
     Dosage: DOSE LEVEL: 400 MG/KG. DOSAGE FORM: VIALS. LAST DOSE PRIOR TO SAE: 25 NOVEMBER 2009
     Route: 042
     Dates: start: 20091104
  6. DOCETAXEL [Suspect]
     Indication: BREAST CANCER
     Dosage: FORM: VIALS, DOSE LEVEL: 100 MG/M2, LAST DOSE PRIOR TO SAE: 13 AUG 2009
     Route: 042
     Dates: start: 20090701
  7. FLUOROURACIL [Suspect]
     Indication: BREAST CANCER
     Dosage: FORM: VIAL, DOSE LEVEL: 500 MG/M2; LAST DOSE PRIOR TO SAE: 15 OCT 2009
     Route: 042
     Dates: start: 20090802
  8. FLUOROURACIL [Suspect]
     Dosage: LAST DOSE PRIOR TO SAE: 02 SEP 2009, DOSE LEVEL: 600MG/M2
     Route: 042
     Dates: start: 20090902
  9. FLUOROURACIL [Suspect]
     Dosage: DOSE LEVEL: 500MG/M2, DOSE REDUCED
     Route: 042
     Dates: start: 20090923
  10. FLUOROURACIL [Suspect]
     Dosage: DOSE LEVEL: 400MG/M2 (DOSE REDUCED)
     Route: 042
     Dates: start: 20091015
  11. EPIRUBICIN [Suspect]
     Indication: BREAST CANCER
     Dosage: FORM: VIAL; LAST DOSE PRIOR TO SAE: 15 AUG 2009; DOSE LEVEL 60 MG/M2
     Route: 042
     Dates: start: 20090802
  12. EPIRUBICIN [Suspect]
     Dosage: LAST DOSE PRIOR TO SAE: 02 SEP 2009, DOSE LEVEL: 90MG/M2
     Route: 042
     Dates: start: 20090902
  13. EPIRUBICIN [Suspect]
     Dosage: DOSE LEVEL: 75MG/M2, DOSE REDUCED
     Route: 042
     Dates: start: 20090923
  14. EPIRUBICIN [Suspect]
     Dosage: DOSE LEVEL: 60MG/M2
     Route: 042
     Dates: start: 20091015
  15. CYCLOPHOSPHAMIDE [Suspect]
     Indication: BREAST CANCER
     Dosage: FORM: VIAL, DOSE LEVEL: 100 MG/M2, LAST DOSE PRIOR TO SAE: 15 OCT 2009
     Route: 042
     Dates: start: 20090802
  16. CYCLOPHOSPHAMIDE [Suspect]
     Dosage: DOSE LEVEL: 600MG/M2, LAST DOSE PRIOR TO SAE: 02 SEP 2009
     Route: 042
     Dates: start: 20090902
  17. CYCLOPHOSPHAMIDE [Suspect]
     Dosage: DOSE LEVEL: 500MG/M2
     Route: 042
     Dates: start: 20090923
  18. CYCLOPHOSPHAMIDE [Suspect]
     Dosage: DOSE LEVEL: 400MG/M2, DOSE REDUCED
     Route: 042
     Dates: start: 20091015
  19. METOCLOPRAMIDE HYDROCHLORIDE [Concomitant]
     Dosage: DRUG: METOCLOPAMIDE
     Dates: start: 20090701
  20. DEXAMETHASONE [Concomitant]
     Dates: start: 20090924, end: 20090926
  21. SODIUM CHLORIDE [Concomitant]
     Dosage: FOR MOUTHWASH
     Dates: start: 20090923
  22. FERROUS SULFATE TAB [Concomitant]
     Dates: start: 20090701
  23. FOLIC ACID [Concomitant]
     Dates: start: 20090701
  24. LORAZEPAM [Concomitant]
     Dates: start: 20090701

REACTIONS (4)
  - DIARRHOEA [None]
  - ENTERITIS [None]
  - GASTRITIS [None]
  - OESOPHAGITIS [None]
